FAERS Safety Report 24690000 (Version 1)
Quarter: 2024Q4

REPORT INFORMATION
  Report Type: Spontaneous
  Country: US (occurrence: None)
  Receive Date: 20241202
  Receipt Date: 20241202
  Transmission Date: 20250115
  Serious: Yes (Other)
  Sender: Public
  Company Number: None

PATIENT
  Age: 39 Year
  Sex: Female

DRUGS (1)
  1. KESIMPTA [Suspect]
     Active Substance: OFATUMUMAB
     Indication: Multiple sclerosis
     Dosage: 20MG  WEEKS 0, 1, 2, AND 4, THEN ONCE MONTHLY THERAFTER?

REACTIONS (4)
  - Abdominal pain upper [None]
  - Chills [None]
  - Tremor [None]
  - Peripheral coldness [None]

NARRATIVE: CASE EVENT DATE: 20241202
